FAERS Safety Report 6522683-2 (Version None)
Quarter: 2009Q4

REPORT INFORMATION
  Report Type: 
  Country: None (occurrence: None)
  Receive Date: 20091224
  Receipt Date: 20091214
  Transmission Date: 20100525
  Serious: Yes (Hospitalization)
  Sender: FDA-Public Use
  Company Number: DSJ-2009-11979

PATIENT
  Age: 56 Year
  Sex: Female
  Weight: 61.6 kg

DRUGS (3)
  1. OLMESARTAN MEDOXOMIL [Suspect]
     Indication: ESSENTIAL HYPERTENSION
     Dosage: 20 MG (20 MG,1 IN 1 D),PER ORAL
     Route: 048
     Dates: start: 20061205
  2. NORVASC [Concomitant]
  3. PRAVASTATIN [Concomitant]

REACTIONS (1)
  - BREAST CANCER [None]
